FAERS Safety Report 24574852 (Version 1)
Quarter: 2024Q4

REPORT INFORMATION
  Report Type: Spontaneous
  Country: US (occurrence: US)
  Receive Date: 20241104
  Receipt Date: 20241104
  Transmission Date: 20250115
  Serious: No
  Sender: MERCK
  Company Number: US-PFIZER INC-202400248514

PATIENT
  Sex: Male

DRUGS (36)
  1. KEYTRUDA [Suspect]
     Active Substance: PEMBROLIZUMAB
     Indication: Neoplasm malignant
     Dosage: UNK
  2. INLYTA [Suspect]
     Active Substance: AXITINIB
     Indication: Neoplasm malignant
     Dosage: 5 MG, Q12H
     Route: 048
     Dates: end: 2024
  3. INLYTA [Suspect]
     Active Substance: AXITINIB
     Dosage: ONE 1MG TABLET EVERY 12 HOURS
     Route: 048
     Dates: start: 20240816
  4. ASPIRIN [Concomitant]
     Active Substance: ASPIRIN
  5. AVODART [Concomitant]
     Active Substance: DUTASTERIDE
  6. BACTRIM DS [Concomitant]
     Active Substance: SULFAMETHOXAZOLE\TRIMETHOPRIM
  7. BENZONATATE [Concomitant]
     Active Substance: BENZONATATE
  8. CLARITIN [Concomitant]
     Active Substance: LORATADINE
  9. COENZYME Q10 [Concomitant]
     Active Substance: DIETARY SUPPLEMENT\UBIDECARENONE
  10. FLOMAX [Concomitant]
     Active Substance: TAMSULOSIN HYDROCHLORIDE
  11. DEXTROSE [Concomitant]
     Active Substance: DEXTROSE MONOHYDRATE
  12. HIZENTRA [Concomitant]
     Active Substance: HUMAN IMMUNOGLOBULIN G
  13. ALBUTEROL\IPRATROPIUM [Concomitant]
     Active Substance: ALBUTEROL\IPRATROPIUM
  14. LATANOPROST [Concomitant]
     Active Substance: LATANOPROST
  15. LEVOTHYROXINE [Concomitant]
     Active Substance: LEVOTHYROXINE
  16. METFORMIN [Concomitant]
     Active Substance: METFORMIN HYDROCHLORIDE
  17. METHOCARBAMOL [Concomitant]
     Active Substance: METHOCARBAMOL
  18. MIRALAX [Concomitant]
     Active Substance: POLYETHYLENE GLYCOL 3350
  19. MYRBETRIQ [Concomitant]
     Active Substance: MIRABEGRON
  20. NOVOLOG [Concomitant]
     Active Substance: INSULIN ASPART
  21. NYSTATIN [Concomitant]
     Active Substance: NYSTATIN
  22. ONDANSETRON [Concomitant]
     Active Substance: ONDANSETRON
  23. OZEMPIC [Concomitant]
     Active Substance: SEMAGLUTIDE
  24. PLAVIX [Concomitant]
     Active Substance: CLOPIDOGREL BISULFATE
  25. LACTOBACILLUS ACIDOPHILUS [Concomitant]
     Active Substance: LACTOBACILLUS ACIDOPHILUS
  26. PROCHLORPERAZINE [Concomitant]
     Active Substance: PROCHLORPERAZINE
  27. PROMETHAZINE [Concomitant]
     Active Substance: PROMETHAZINE HYDROCHLORIDE
  28. ROSUVASTATIN [Concomitant]
     Active Substance: ROSUVASTATIN
  29. SINGULAIR [Concomitant]
     Active Substance: MONTELUKAST SODIUM
  30. TESTOSTERONE [Concomitant]
     Active Substance: TESTOSTERONE
  31. TOBRAMYCIN [Concomitant]
     Active Substance: TOBRAMYCIN\TOBRAMYCIN SULFATE
  32. TRELEGY ELLIPTA [Concomitant]
     Active Substance: FLUTICASONE FUROATE\UMECLIDINIUM BROMIDE\VILANTEROL TRIFENATATE
  33. TYLENOL [Concomitant]
     Active Substance: ACETAMINOPHEN
  34. VITAMIN B12 [Concomitant]
     Active Substance: CYANOCOBALAMIN
  35. VITAMIN D3 [Concomitant]
     Active Substance: CHOLECALCIFEROL
  36. ZITHROMAX [Concomitant]
     Active Substance: AZITHROMYCIN DIHYDRATE

REACTIONS (4)
  - Muscle spasms [Not Recovered/Not Resolved]
  - Hypertension [Not Recovered/Not Resolved]
  - Headache [Not Recovered/Not Resolved]
  - Blood glucose increased [Not Recovered/Not Resolved]

NARRATIVE: CASE EVENT DATE: 20240101
